FAERS Safety Report 18377120 (Version 2)
Quarter: 2020Q4

REPORT INFORMATION
  Report Type: Spontaneous
  Country: US (occurrence: US)
  Receive Date: 20201013
  Receipt Date: 20201120
  Transmission Date: 20210114
  Serious: No
  Sender: FDA-Public Use
  Company Number: US-MYLANLABS-2020M1084082

PATIENT
  Age: 86 Year
  Sex: Male
  Weight: 75 kg

DRUGS (7)
  1. METOLAZONE. [Suspect]
     Active Substance: METOLAZONE
     Indication: DIURETIC THERAPY
     Dosage: 2.5 MG TABLET 3X PER WEEK ON MONDAY, WEDNESDAY AND FRIDAY FOR 2 WEEKS
     Dates: start: 2020
  2. METOLAZONE. [Suspect]
     Active Substance: METOLAZONE
     Indication: HYPOAESTHESIA
     Dosage: 2.5 MG TABLET 2X PER WEEK ON MONDAY AND THURSDAY
     Dates: start: 20201019
  3. POTASSIUM                          /00031402/ [Concomitant]
     Active Substance: POTASSIUM
     Dosage: UNK
  4. FUROSEMIDE. [Suspect]
     Active Substance: FUROSEMIDE
     Indication: DIURETIC THERAPY
     Dosage: 40 MILLIGRAM
     Dates: start: 202009
  5. METOLAZONE. [Suspect]
     Active Substance: METOLAZONE
     Indication: SWELLING
  6. METOLAZONE. [Suspect]
     Active Substance: METOLAZONE
     Indication: HYPERHIDROSIS
     Dosage: 2.5 MILLIGRAM
     Dates: start: 202009
  7. METOLAZONE. [Suspect]
     Active Substance: METOLAZONE
     Indication: CARDIAC DISORDER

REACTIONS (2)
  - Blood potassium decreased [Unknown]
  - Product use issue [Unknown]

NARRATIVE: CASE EVENT DATE: 202009
